FAERS Safety Report 15202827 (Version 1)
Quarter: 2018Q4

REPORT INFORMATION
  Report Type: Spontaneous
  Country: GB (occurrence: GB)
  Receive Date: 20180726
  Receipt Date: 20180726
  Transmission Date: 20190204
  Serious: Yes (Other)
  Sender: FDA-Public Use
  Company Number: GB-PFIZER INC-2018295060

PATIENT
  Age: 70 Year
  Sex: Male
  Weight: 86.1 kg

DRUGS (7)
  1. CARBOCISTEINE [Interacting]
     Active Substance: CARBOCYSTEINE
     Indication: PRODUCTIVE COUGH
     Dosage: 375 MG, UNK (NOON)
     Route: 048
     Dates: start: 20180329, end: 20180412
  2. LATANOPROST. [Suspect]
     Active Substance: LATANOPROST
     Dosage: MORNING - 1 DROP INTO LEFT EYE ONCE DAILY 50 MICROGRAMS/ML
  3. BETNESOL-N /00203601/ [Interacting]
     Active Substance: BETAMETHASONE SODIUM PHOSPHATE\NEOMYCIN SULFATE
     Dosage: 9 DF, 1X/DAY (RIGHT EAR)
  4. ACETYLSALICYLIC ACID [Interacting]
     Active Substance: ASPIRIN
     Dosage: 75 MG, 1X/DAY (MORNING)
  5. OMEPRAZOLE. [Interacting]
     Active Substance: OMEPRAZOLE
     Indication: DYSPEPSIA
     Dosage: 40 MG, 1X/DAY (MORNING)
  6. EZETIMIBE. [Interacting]
     Active Substance: EZETIMIBE
     Dosage: 10 MG, 1X/DAY (MORNING)
  7. CANDESARTAN. [Interacting]
     Active Substance: CANDESARTAN
     Dosage: 4 MG, 1X/DAY (MORNING)

REACTIONS (14)
  - Burning sensation [Unknown]
  - Vomiting [Recovered/Resolved]
  - Renal disorder [Recovered/Resolved]
  - Diarrhoea [Recovered/Resolved]
  - Gastrointestinal disorder [Recovered/Resolved]
  - Chest injury [Recovered/Resolved]
  - Movement disorder [Recovered/Resolved]
  - Lethargy [Recovered/Resolved]
  - Polyuria [Recovered/Resolved]
  - Dyspnoea exertional [Not Recovered/Not Resolved]
  - Eructation [Recovered/Resolved]
  - Drug interaction [Unknown]
  - Chest discomfort [Not Recovered/Not Resolved]
  - Chest pain [Recovered/Resolved]

NARRATIVE: CASE EVENT DATE: 20180405
